FAERS Safety Report 15249024 (Version 1)
Quarter: 2018Q4

REPORT INFORMATION
  Report Type: Spontaneous
  Country: IT (occurrence: IT)
  Receive Date: 20180807
  Receipt Date: 20180807
  Transmission Date: 20190204
  Serious: Yes (Hospitalization)
  Sender: FDA-Public Use
  Company Number: IT-HIKMA PHARMACEUTICALS USA INC.-IT-H14001-18-06360

PATIENT
  Age: 34 Year
  Sex: Male

DRUGS (8)
  1. FLUMAZENIL. [Suspect]
     Active Substance: FLUMAZENIL
     Indication: DRUG DEPENDENCE
     Dosage: UNKNOWN ()
     Route: 058
  2. LORMETAZEPAM [Suspect]
     Active Substance: LORMETAZEPAM
     Route: 065
  3. METHYLPHENIDATE. [Concomitant]
     Active Substance: METHYLPHENIDATE
     Indication: ATTENTION DEFICIT/HYPERACTIVITY DISORDER
     Route: 065
  4. ACAMPROSATE [Concomitant]
     Active Substance: ACAMPROSATE
     Indication: PRODUCT USED FOR UNKNOWN INDICATION
     Route: 065
  5. BACLOFEN. [Concomitant]
     Active Substance: BACLOFEN
     Indication: PRODUCT USED FOR UNKNOWN INDICATION
     Route: 065
  6. BROMAZEPAM [Suspect]
     Active Substance: BROMAZEPAM
     Indication: ATTENTION DEFICIT/HYPERACTIVITY DISORDER
     Route: 065
  7. LORMETAZEPAM [Suspect]
     Active Substance: LORMETAZEPAM
     Indication: ATTENTION DEFICIT/HYPERACTIVITY DISORDER
     Route: 065
  8. LORMETAZEPAM [Suspect]
     Active Substance: LORMETAZEPAM
     Route: 065

REACTIONS (5)
  - Intentional product use issue [Unknown]
  - Intentional overdose [Unknown]
  - Withdrawal syndrome [Unknown]
  - Incorrect route of product administration [Recovered/Resolved]
  - Off label use [Unknown]
